FAERS Safety Report 12462026 (Version 1)
Quarter: 2016Q2

REPORT INFORMATION
  Report Type: Spontaneous
  Country: ES (occurrence: ES)
  Receive Date: 20160613
  Receipt Date: 20160613
  Transmission Date: 20160815
  Serious: Yes (Hospitalization)
  Sender: FDA-Public Use
  Company Number: ES-BAUSCH-BL-2016-013895

PATIENT
  Age: 75 Year
  Sex: Female

DRUGS (1)
  1. CYCLOPENTOLATE. [Suspect]
     Active Substance: CYCLOPENTOLATE
     Indication: MYDRIASIS
     Dosage: COUPLE OF DROPS IN EACH EYE
     Route: 047

REACTIONS (7)
  - Dysarthria [Recovering/Resolving]
  - Psychomotor hyperactivity [Recovering/Resolving]
  - Blood pressure abnormal [Recovering/Resolving]
  - Disorientation [Recovering/Resolving]
  - Aortic bruit [Recovering/Resolving]
  - Confusional state [Recovering/Resolving]
  - Incoherent [Recovering/Resolving]
